FAERS Safety Report 26183291 (Version 1)
Quarter: 2025Q4

REPORT INFORMATION
  Report Type: Spontaneous
  Country: US (occurrence: US)
  Receive Date: 20251221
  Receipt Date: 20251221
  Transmission Date: 20260118
  Serious: No
  Sender: FRESENIUS KABI
  Company Number: US-FreseniusKabi-FK202516848

PATIENT

DRUGS (1)
  1. XYLOCAINE [Suspect]
     Active Substance: LIDOCAINE HYDROCHLORIDE
     Indication: Product used for unknown indication
     Dosage: INJECTION 20ML

REACTIONS (1)
  - Dizziness [Unknown]
